FAERS Safety Report 17954588 (Version 1)
Quarter: 2020Q2

REPORT INFORMATION
  Report Type: Spontaneous
  Country: AU (occurrence: AU)
  Receive Date: 20200629
  Receipt Date: 20200629
  Transmission Date: 20200714
  Serious: Yes (Other)
  Sender: FDA-Public Use
  Company Number: AU-SUN PHARMACEUTICAL INDUSTRIES LTD-2020R1-251100

PATIENT
  Age: 19 Year
  Sex: Female

DRUGS (6)
  1. INSULIN [Suspect]
     Active Substance: INSULIN NOS
     Indication: PANCREATITIS
  2. HEPARIN [Suspect]
     Active Substance: HEPARIN SODIUM
     Indication: PANCREATITIS
  3. HEPARIN [Suspect]
     Active Substance: HEPARIN SODIUM
     Indication: HYPERTRIGLYCERIDAEMIA
     Dosage: 5000 INTERNATIONAL UNIT, TID
     Route: 058
  4. INSULIN [Suspect]
     Active Substance: INSULIN NOS
     Indication: HYPERTRIGLYCERIDAEMIA
     Dosage: UNK
     Route: 065
  5. GEMFIBROZIL. [Suspect]
     Active Substance: GEMFIBROZIL
     Indication: PANCREATITIS
  6. GEMFIBROZIL. [Suspect]
     Active Substance: GEMFIBROZIL
     Indication: HYPERTRIGLYCERIDAEMIA
     Dosage: 200 MILLIGRAM, TID
     Route: 065

REACTIONS (3)
  - Exposure during pregnancy [Unknown]
  - Live birth [Unknown]
  - Drug ineffective [Unknown]
